FAERS Safety Report 24909236 (Version 1)
Quarter: 2025Q1

REPORT INFORMATION
  Report Type: Spontaneous
  Country: US (occurrence: None)
  Receive Date: 20250130
  Receipt Date: 20250130
  Transmission Date: 20250408
  Serious: No
  Sender: FDA-CTU
  Company Number: None

PATIENT
  Age: 67 Year
  Sex: Male

DRUGS (1)
  1. ABIRATERONE ACETATE [Suspect]
     Active Substance: ABIRATERONE ACETATE
     Indication: Prostate cancer
     Dosage: TAKE 2 TABLETS (1,000 MG) BY MOUTH ONCE PER DAY.?
     Route: 048
     Dates: start: 20210723, end: 20250123

REACTIONS (1)
  - Illness [None]

NARRATIVE: CASE EVENT DATE: 20250123
